FAERS Safety Report 9703693 (Version 2)
Quarter: 2013Q4

REPORT INFORMATION
  Report Type: Spontaneous
  Country: US (occurrence: US)
  Receive Date: 20131122
  Receipt Date: 20131125
  Transmission Date: 20140711
  Serious: No
  Sender: FDA-Public Use
  Company Number: US-009507513-1311USA007584

PATIENT
  Sex: Male

DRUGS (3)
  1. JANUMET XR [Suspect]
     Indication: DIABETES MELLITUS
     Dosage: UNK, HS
     Route: 048
     Dates: start: 201307
  2. RANITIDINE [Concomitant]
  3. GLYBURIDE [Concomitant]

REACTIONS (1)
  - Diarrhoea [Not Recovered/Not Resolved]
